FAERS Safety Report 9205328 (Version 2)
Quarter: 2013Q2

REPORT INFORMATION
  Report Type: Spontaneous
  Country: US (occurrence: US)
  Receive Date: 20130402
  Receipt Date: 20130409
  Transmission Date: 20140414
  Serious: Yes (Other)
  Sender: FDA-Public Use
  Company Number: US-US-EMD SERONO, INC.-231870K07USA

PATIENT
  Age: 44 Year
  Sex: Female
  Weight: 76 kg

DRUGS (1)
  1. REBIF [Suspect]
     Indication: RELAPSING-REMITTING MULTIPLE SCLEROSIS
     Route: 058
     Dates: start: 20060615

REACTIONS (6)
  - Intervertebral disc protrusion [Recovered/Resolved]
  - Back injury [Recovered/Resolved]
  - Nausea [Unknown]
  - Intervertebral disc disorder [Recovered/Resolved]
  - Vomiting [Unknown]
  - Arthritis [Unknown]
